FAERS Safety Report 13628777 (Version 1)
Quarter: 2017Q2

REPORT INFORMATION
  Report Type: Spontaneous
  Country: ES (occurrence: ES)
  Receive Date: 20170607
  Receipt Date: 20170607
  Transmission Date: 20170830
  Serious: Yes (Hospitalization)
  Sender: FDA-Public Use
  Company Number: ES-PFIZER INC-2017244708

PATIENT
  Age: 83 Year
  Sex: Female

DRUGS (13)
  1. CELEBREX [Suspect]
     Active Substance: CELECOXIB
     Indication: BACK PAIN
     Dosage: 200 MG, 1X/DAY
     Route: 048
     Dates: start: 2017, end: 20170509
  2. NITROGLICERIN [Concomitant]
     Active Substance: NITROGLYCERIN
     Dosage: 0.4 MG, 3X/DAY
     Route: 048
  3. ENALAPRIL [Interacting]
     Active Substance: ENALAPRIL
     Indication: HYPERTENSION
     Dosage: 20 MG, 1X/DAY
     Route: 048
     Dates: start: 2017, end: 20170509
  4. DILTIAZEM HYDROCHLORIDE. [Concomitant]
     Active Substance: DILTIAZEM HYDROCHLORIDE
     Dosage: 120 MG, 2X/DAY
     Route: 048
  5. CITALOPRAM [Concomitant]
     Active Substance: CITALOPRAM HYDROBROMIDE
     Dosage: 20 MG, 1X/DAY
     Route: 048
  6. ACENOCUMAROL [Concomitant]
     Active Substance: ACENOCOUMAROL
     Dosage: AS PER LABEL
     Route: 048
  7. SPIRONOLACTONE. [Interacting]
     Active Substance: SPIRONOLACTONE
     Indication: HYPERTENSION
     Dosage: 25 MG, 1X/DAY
     Route: 048
     Dates: start: 2017, end: 20170509
  8. SEPTRIN [Concomitant]
     Active Substance: SULFAMETHOXAZOLE\TRIMETHOPRIM
     Dosage: 1 DF (80 MG/400 MG), 1X/DAY
     Route: 048
  9. ATORVASTATIN [Concomitant]
     Active Substance: ATORVASTATIN
     Dosage: 10 MG, 1X/DAY
     Route: 048
  10. LORAZEPAM. [Concomitant]
     Active Substance: LORAZEPAM
     Dosage: 1 MG, 1X/DAY
     Route: 048
  11. BUDESONIDA ALDO UNION [Concomitant]
     Indication: ASTHMA
     Dosage: 0.25 MG, 2X/DAY
     Route: 055
  12. COMBIPRASAL [Concomitant]
     Active Substance: ALBUTEROL SULFATE\IPRATROPIUM BROMIDE
     Indication: ASTHMA
     Dosage: 1 DF (0.5 MG/2.5 MG ), 3X/DAY
     Route: 055
  13. PARACETAMOL [Concomitant]
     Active Substance: ACETAMINOPHEN
     Dosage: 1 G, 3X/DAY
     Route: 048

REACTIONS (3)
  - Drug interaction [Recovered/Resolved]
  - Hyperkalaemia [Recovered/Resolved]
  - Acute kidney injury [Recovered/Resolved]

NARRATIVE: CASE EVENT DATE: 20170503
